FAERS Safety Report 9757495 (Version 1)
Quarter: 2013Q4

REPORT INFORMATION
  Report Type: Report from Study
  Country: JP (occurrence: JP)
  Receive Date: 20131215
  Receipt Date: 20131215
  Transmission Date: 20140711
  Serious: Yes (Hospitalization)
  Sender: FDA-Public Use
  Company Number: JP-PFIZER INC-2013356011

PATIENT
  Age: 76 Year
  Sex: Male
  Weight: 54 kg

DRUGS (17)
  1. LYRICA [Suspect]
     Indication: PROPHYLAXIS
     Dosage: 75 MG, DAILY
     Route: 048
     Dates: end: 20121106
  2. CARERAM [Suspect]
     Indication: RHEUMATOID ARTHRITIS
     Dosage: 25 MG, 1X/DAY
     Route: 048
     Dates: start: 20120912, end: 20121009
  3. CARERAM [Suspect]
     Dosage: 25 MG, 2X/DAY
     Route: 048
     Dates: start: 20121010, end: 20121206
  4. PREDNISOLONE [Concomitant]
     Dosage: 10 MG, DAILY
     Route: 048
  5. AZULFIDINE [Concomitant]
     Dosage: 1000 MG, DAILY
     Route: 048
  6. PANALDINE [Concomitant]
     Indication: PROPHYLAXIS
     Dosage: 200 MG, DAILY
     Route: 048
  7. NEXIUM [Concomitant]
     Indication: PROPHYLAXIS
     Dosage: 20 MG, DAILY
     Route: 048
     Dates: start: 20121108, end: 20121128
  8. LAC B [Concomitant]
     Indication: PROPHYLAXIS
     Dosage: UNK
     Route: 048
  9. TAKEPRON [Concomitant]
     Indication: PROPHYLAXIS
     Dosage: 30 MG, DAILY
     Route: 048
  10. MUCOSOLVAN [Concomitant]
     Indication: PROPHYLAXIS
     Dosage: 45 MG, DAILY
     Route: 048
  11. OTHER DERMATOLOGICAL PREPARATIONS [Concomitant]
     Indication: RHEUMATOID ARTHRITIS
     Dosage: UNK
  12. ALOSITOL [Concomitant]
     Indication: PROPHYLAXIS
     Dosage: 100 MG, DAILY
     Route: 048
  13. URALYT [Concomitant]
     Indication: PROPHYLAXIS
     Dosage: 4 DF, DAILY
     Route: 048
  14. MUCOSTA [Concomitant]
     Indication: PROPHYLAXIS
     Dosage: 300 MG, DAILY
     Route: 048
  15. MOBIC [Concomitant]
     Indication: RHEUMATOID ARTHRITIS
     Dosage: 15 MG, DAILY
     Route: 048
  16. MUCODYNE [Concomitant]
     Indication: PROPHYLAXIS
     Dosage: 750 MG, DAILY
     Route: 048
  17. CLEANAL [Concomitant]
     Indication: PROPHYLAXIS
     Dosage: 1200 MG, DAILY
     Route: 048

REACTIONS (1)
  - Decreased appetite [Unknown]
